FAERS Safety Report 8348824-2 (Version None)
Quarter: 2012Q2

REPORT INFORMATION
  Report Type: 
  Country: None (occurrence: None)
  Receive Date: 20120508
  Receipt Date: 20120423
  Transmission Date: 20120825
  Serious: Yes (Other)
  Sender: FDA-Public Use
  Company Number: JPI-P-019555

PATIENT
  Age: 48 Year
  Sex: Female
  Weight: 58.9676 kg

DRUGS (2)
  1. XYREM [Suspect]
     Indication: FIBROMYALGIA
     Dosage: ORAL ; 9 GM (4.5 GM,2 IN 1 D),ORAL
     Route: 048
     Dates: start: 20090901
  2. LORAZEPAM [Concomitant]

REACTIONS (9)
  - AUTOIMMUNE THYROIDITIS [None]
  - GASTRIC DISORDER [None]
  - FEELING JITTERY [None]
  - HYPERHIDROSIS [None]
  - CYSTITIS [None]
  - NAUSEA [None]
  - DEPRESSION [None]
  - DIARRHOEA [None]
  - DIZZINESS [None]
